FAERS Safety Report 17905542 (Version 1)
Quarter: 2020Q2

REPORT INFORMATION
  Report Type: Spontaneous
  Country: US (occurrence: US)
  Receive Date: 20200616
  Receipt Date: 20200616
  Transmission Date: 20200714
  Serious: Yes (Death)
  Sender: FDA-Public Use
  Company Number: None

PATIENT
  Age: 41 Year
  Sex: Male
  Weight: 83 kg

DRUGS (20)
  1. REMDESIVIR. [Suspect]
     Active Substance: REMDESIVIR
     Indication: COVID-19
     Route: 042
     Dates: start: 20200603, end: 20200603
  2. HUMALOG [Concomitant]
     Active Substance: INSULIN LISPRO
     Dates: start: 20200603, end: 20200612
  3. METOPROPOL [Concomitant]
     Dates: start: 20200610, end: 20200611
  4. FENTANYL DRIP [Concomitant]
     Dates: start: 20200603, end: 20200612
  5. PROPOFOL. [Concomitant]
     Active Substance: PROPOFOL
     Dates: start: 20200603, end: 20200612
  6. HYDROXYCHLOROQUINE [Concomitant]
     Active Substance: HYDROXYCHLOROQUINE
     Dates: start: 20200603, end: 20200608
  7. NOREPINEPHRINE DRIP [Concomitant]
     Dates: start: 20200603, end: 20200606
  8. ACORBIC ACID [Concomitant]
     Dates: start: 20200608, end: 20200612
  9. ZINC SULFATE. [Concomitant]
     Active Substance: ZINC SULFATE
     Dates: start: 20200604, end: 20200612
  10. HEPARIN [Concomitant]
     Active Substance: HEPARIN SODIUM
     Dates: start: 20200603, end: 20200612
  11. CEFTRIAXONE. [Concomitant]
     Active Substance: CEFTRIAXONE
     Dates: start: 20200603, end: 20200611
  12. VANCOMYCIN [Concomitant]
     Active Substance: VANCOMYCIN
     Dates: start: 20200603, end: 20200611
  13. ESOMEPRZOLE [Concomitant]
     Dates: start: 20200604, end: 20200612
  14. SOLUMEDROL TAPER DOSE [Concomitant]
     Dates: start: 20200603, end: 20200606
  15. PROPRANOLOL [Concomitant]
     Active Substance: PROPRANOLOL HYDROCHLORIDE
     Dates: start: 20200609, end: 20200610
  16. ROCURONIUM [Concomitant]
     Active Substance: ROCURONIUM BROMIDE
     Dates: start: 20200603, end: 20200612
  17. ACETAMINOPHINE [Concomitant]
     Dates: start: 20200608, end: 20200611
  18. REMDESIVIR. [Suspect]
     Active Substance: REMDESIVIR
     Indication: COVID-19
     Route: 042
     Dates: start: 20200604, end: 20200611
  19. LASIX DRIP [Concomitant]
     Dates: start: 20200610, end: 20200612
  20. MIDAZOLAM DRIP [Concomitant]
     Dates: start: 20200603, end: 20200612

REACTIONS (3)
  - Transaminases increased [None]
  - Hepatic steatosis [None]
  - Blood bilirubin increased [None]

NARRATIVE: CASE EVENT DATE: 20200612
